FAERS Safety Report 5304488-3 (Version None)
Quarter: 2007Q2

REPORT INFORMATION
  Report Type: 
  Country: None (occurrence: None)
  Receive Date: 20070423
  Receipt Date: 20070409
  Transmission Date: 20071010
  Serious: Yes (Other)
  Sender: FDA-Public Use
  Company Number: US-AMGEN-KDL214529

PATIENT
  Sex: Female

DRUGS (4)
  1. ENBREL [Suspect]
     Indication: PSORIASIS
     Route: 058
     Dates: start: 20070221, end: 20070312
  2. XANAX [Concomitant]
  3. PROZAC [Concomitant]
  4. NEXIUM [Concomitant]

REACTIONS (11)
  - AURICULAR SWELLING [None]
  - EYE SWELLING [None]
  - FATIGUE [None]
  - FEELING ABNORMAL [None]
  - HEADACHE [None]
  - HYPERSENSITIVITY [None]
  - INJECTION SITE URTICARIA [None]
  - LETHARGY [None]
  - LIP SWELLING [None]
  - NASAL OEDEMA [None]
  - RASH PAPULAR [None]
